FAERS Safety Report 11845755 (Version 1)
Quarter: 2015Q4

REPORT INFORMATION
  Report Type: Spontaneous
  Country: US (occurrence: US)
  Receive Date: 20151217
  Receipt Date: 20151217
  Transmission Date: 20160305
  Serious: Yes (Hospitalization)
  Sender: FDA-Public Use
  Company Number: US-NOVOPROD-434389

PATIENT
  Age: 58 Year
  Sex: Female

DRUGS (3)
  1. NOVOLOG [Concomitant]
     Active Substance: INSULIN ASPART
     Indication: TYPE 2 DIABETES MELLITUS
     Dosage: UNKNOWN
     Route: 058
  2. LEVEMIR [Suspect]
     Active Substance: INSULIN DETEMIR
     Indication: TYPE 2 DIABETES MELLITUS
     Dosage: 17 UNITS DAILY
     Route: 058
     Dates: start: 2010
  3. LEVEMIR [Suspect]
     Active Substance: INSULIN DETEMIR
     Dosage: 17 UNITS DAILY
     Route: 058
     Dates: start: 2010

REACTIONS (3)
  - Hypoglycaemic unconsciousness [Recovered/Resolved]
  - Expired product administered [Not Recovered/Not Resolved]
  - Pain [Recovered/Resolved]

NARRATIVE: CASE EVENT DATE: 20141229
